FAERS Safety Report 11074562 (Version 1)
Quarter: 2015Q2

REPORT INFORMATION
  Report Type: Spontaneous
  Country: US (occurrence: US)
  Receive Date: 20150429
  Receipt Date: 20150429
  Transmission Date: 20150821
  Serious: Yes (Hospitalization)
  Sender: FDA-Public Use
  Company Number: US-ELI_LILLY_AND_COMPANY-US201504007095

PATIENT
  Sex: Female

DRUGS (1)
  1. CYMBALTA [Suspect]
     Active Substance: DULOXETINE HYDROCHLORIDE
     Indication: PRODUCT USED FOR UNKNOWN INDICATION
     Dosage: 120 MG, QD
     Route: 065
     Dates: end: 2013

REACTIONS (9)
  - Amnesia [Unknown]
  - Dehydration [Unknown]
  - Cough [Unknown]
  - Intentional product misuse [Unknown]
  - Malaise [Unknown]
  - Retching [Unknown]
  - Paraesthesia [Unknown]
  - Carbon monoxide poisoning [Unknown]
  - Drug withdrawal syndrome [Unknown]

NARRATIVE: CASE EVENT DATE: 2013
